FAERS Safety Report 10021538 (Version 1)
Quarter: 2014Q1

REPORT INFORMATION
  Report Type: Spontaneous
  Country: GB (occurrence: GB)
  Receive Date: 20140319
  Receipt Date: 20140319
  Transmission Date: 20141002
  Serious: Yes (Other)
  Sender: FDA-Public Use
  Company Number: GB-MERCK-1403GBR008022

PATIENT
  Sex: Male

DRUGS (1)
  1. ISENTRESS [Suspect]
     Dosage: 400MG,2 X A DAY
     Route: 048

REACTIONS (2)
  - Aortic aneurysm [Unknown]
  - Aortic dilatation [Unknown]
